FAERS Safety Report 8232992-7 (Version None)
Quarter: 2012Q1

REPORT INFORMATION
  Report Type: 
  Country: None (occurrence: None)
  Receive Date: 20120326
  Receipt Date: 20120316
  Transmission Date: 20120608
  Serious: Yes (Hospitalization)
  Sender: FDA-Public Use
  Company Number: FR-BIOGENIDEC-2011BI004213

PATIENT
  Age: 49 Year
  Sex: Female

DRUGS (5)
  1. CHONDROITIN [Concomitant]
     Indication: OSTEOARTHRITIS
  2. CLONAZEPAM [Concomitant]
  3. PROANTHOCYANIDINE [Concomitant]
     Indication: OEDEMA
  4. TYSABRI [Suspect]
     Indication: MULTIPLE SCLEROSIS
     Route: 042
     Dates: start: 20080331, end: 20101129
  5. COPAXONE [Concomitant]
     Dates: start: 20110207

REACTIONS (1)
  - INTERSTITIAL LUNG DISEASE [None]
